FAERS Safety Report 7623844-1 (Version None)
Quarter: 2011Q3

REPORT INFORMATION
  Report Type: 
  Country: None (occurrence: None)
  Receive Date: 20110720
  Receipt Date: 20110718
  Transmission Date: 20111222
  Serious: Yes (Other)
  Sender: FDA-Public Use
  Company Number: US-PFIZER INC-2011162433

PATIENT
  Age: 54 Year
  Sex: Male
  Weight: 91 kg

DRUGS (7)
  1. LYRICA [Suspect]
     Dosage: 300 MG, 2X/DAY
     Route: 048
  2. EFFEXOR [Concomitant]
     Indication: DEPRESSION
     Dosage: UNK
  3. LYRICA [Suspect]
     Indication: FIBROMYALGIA
     Dosage: UNK
     Route: 048
     Dates: start: 20090101
  4. VIAGRA [Suspect]
     Indication: MALE ORGASMIC DISORDER
     Dosage: UNK
     Dates: start: 20100101
  5. VIAGRA [Suspect]
     Indication: EJACULATION FAILURE
  6. VIAGRA [Suspect]
     Indication: EJACULATION DELAYED
  7. ATIVAN [Concomitant]
     Indication: ANXIETY
     Dosage: UNK

REACTIONS (3)
  - MALE ORGASMIC DISORDER [None]
  - DRUG INEFFECTIVE [None]
  - PAIN [None]
